FAERS Safety Report 5923763-2 (Version None)
Quarter: 2008Q3

REPORT INFORMATION
  Report Type: 
  Country: None (occurrence: None)
  Receive Date: 20080909
  Receipt Date: 20080125
  Transmission Date: 20090109
  Serious: Yes (Hospitalization)
  Sender: FDA-Public Use
  Company Number: 163-20785-07121438

PATIENT
  Age: 21 Year
  Sex: Female
  Weight: 54.7 kg

DRUGS (19)
  1. THALOMID [Suspect]
     Indication: EPENDYMOMA
     Dosage: 150 MG, QHS, ORAL ; 50 MG
     Route: 048
     Dates: start: 20071127, end: 20071219
  2. ETOPOSIDE [Suspect]
     Indication: EPENDYMOMA
     Dosage: 80 MG, AT BEDTIME FOR 21 DAYS, ORAL
     Route: 048
     Dates: start: 20071127, end: 20071219
  3. CELEBREX [Suspect]
     Indication: EPENDYMOMA
     Dosage: 400 MG, 1 IN 12 HR, ORAL
     Route: 048
  4. CYCLOPHOSPHAMIDE [Suspect]
     Indication: EPENDYMOMA
     Dosage: 2 TAB, DAILY EVERY 21 DAYS ALT WITH VP-16, ORAL
     Route: 048
  5. FENOFIBRATE [Suspect]
     Indication: EPENDYMOMA
     Dosage: 134 MG, 1 IN 1 D, ORAL
     Route: 048
  6. SINGULAIR [Concomitant]
  7. MULTIVITAMINS (MULTIVITAMINS) (TABLETS) [Concomitant]
  8. ALLEGRA [Concomitant]
  9. NYSTATIN (NYSTATIN) (SUSPENSION) [Concomitant]
  10. ZANTAC (RANITIDINE HYDROCHLORIDE) (150 MILLIGRAM, TABLETS) [Concomitant]
  11. DULCOLAX (BISACODYL) (CAPSULES) [Concomitant]
  12. SENNA (SENNA) (CAPSULES) [Concomitant]
  13. VALTREX (VALACICLOVIR HYDROCHLORIDE) (TABLETS) [Concomitant]
  14. SULFAMETHOXAZOLE-TMP DS (BACTRIM) (TABLETS) [Concomitant]
  15. MARINOL (DRONABINOL) (10 MILLIGRAM, CAPSULES) [Concomitant]
  16. LORAZEPAM (LORAZEPAM) (TABLETS) [Concomitant]
  17. TUMS (CALCIUM CARBONATE) (CHEWABLE TABLET) [Concomitant]
  18. COMPAZINE (PROCHLORPERAZINE EDISYLATE) (TABLETS) [Concomitant]
  19. MIRALAX (MACROGOL) (POWDER) [Concomitant]

REACTIONS (5)
  - ANOREXIA [None]
  - CONSTIPATION [None]
  - DEHYDRATION [None]
  - NAUSEA [None]
  - VOMITING [None]
